FAERS Safety Report 7157054 (Version 22)
Quarter: 2013Q4

REPORT INFORMATION
  Report Type: Report from Study
  Country: CA (occurrence: CA)
  Receive Date: 20091023
  Receipt Date: 20131119
  Transmission Date: 20140711
  Serious: Yes (Death, Hospitalization, Other)
  Sender: FDA-Public Use
  Company Number: PHHY2009CA25068

PATIENT
  Sex: Female

DRUGS (2)
  1. SANDOSTATIN LAR [Suspect]
     Indication: METASTATIC CARCINOID TUMOUR
     Dosage: 30 MG, ONCE A MONTH
     Route: 030
     Dates: start: 20071214, end: 20131017
  2. COUMADINE [Concomitant]
     Dosage: UNK UKN, UNK

REACTIONS (22)
  - Death [Fatal]
  - Pneumonia [Unknown]
  - Sepsis [Unknown]
  - Dyspnoea [Unknown]
  - Blood count abnormal [Recovering/Resolving]
  - Anaemia [Recovering/Resolving]
  - Pleural effusion [Unknown]
  - General physical health deterioration [Unknown]
  - Blood pressure increased [Unknown]
  - Nausea [Unknown]
  - Malignant neoplasm progression [Unknown]
  - Weight decreased [Unknown]
  - Hypoglycaemia [Unknown]
  - Decreased appetite [Unknown]
  - Blood glucose fluctuation [Unknown]
  - Feeling hot [Unknown]
  - Hot flush [Unknown]
  - Device difficult to use [Unknown]
  - Fatigue [Unknown]
  - Abdominal discomfort [Unknown]
  - Flatulence [Unknown]
  - Abdominal pain [Unknown]
